FAERS Safety Report 4848146-8 (Version None)
Quarter: 2005Q4

REPORT INFORMATION
  Report Type: 
  Country: None (occurrence: None)
  Receive Date: 20051206
  Receipt Date: 20051206
  Transmission Date: 20060501
  Serious: Yes (Hospitalization)
  Sender: FDA-Public Use
  Company Number: None

PATIENT
  Age: 44 Year
  Sex: Male

DRUGS (2)
  1. PEGASYS [Suspect]
     Indication: HEPATITIS C
     Dosage: ONE DOSE ONLY
  2. NOVOLIN 70/30 [Concomitant]

REACTIONS (3)
  - COMA [None]
  - DEPRESSED LEVEL OF CONSCIOUSNESS [None]
  - NEUTROPENIA [None]
